FAERS Safety Report 9887993 (Version 4)
Quarter: 2019Q4

REPORT INFORMATION
  Report Type: Spontaneous
  Country: US (occurrence: US)
  Receive Date: 20140211
  Receipt Date: 20191219
  Transmission Date: 20200122
  Serious: No
  Sender: FDA-Public Use
  Company Number: US-UCBSA-111455

PATIENT
  Age: 78 Year
  Sex: Male
  Weight: 87.99 kg

DRUGS (5)
  1. MTX [Concomitant]
     Active Substance: METHOTREXATE SODIUM
     Dosage: MONDAY
  2. PREDNISONE. [Concomitant]
     Active Substance: PREDNISONE
     Dosage: 6 MG, ONCE DAILY (QD)
  3. CIMZIA [Suspect]
     Active Substance: CERTOLIZUMAB PEGOL
     Indication: RHEUMATOID ARTHRITIS
     Dosage: 200 MG, EV 2 WEEKS(QOW)
     Dates: start: 201311, end: 201401
  4. PREDNISONE. [Concomitant]
     Active Substance: PREDNISONE
     Indication: RHEUMATOID ARTHRITIS
     Dosage: 20 MG, ONCE DAILY (QD)
  5. MELOXICAL [Concomitant]
     Indication: ARTHRALGIA
     Dosage: 7.5 MG, ONCE DAILY (QD)

REACTIONS (1)
  - Nasopharyngitis [Recovered/Resolved]

NARRATIVE: CASE EVENT DATE: 20140121
